FAERS Safety Report 4690798-X (Version None)
Quarter: 2005Q2

REPORT INFORMATION
  Report Type: 
  Country: None (occurrence: None)
  Receive Date: 20050613
  Receipt Date: 20050531
  Transmission Date: 20051028
  Serious: Yes (Hospitalization)
  Sender: FDA-Public Use
  Company Number: 2005081351

PATIENT
  Age: 38 Year
  Sex: Female

DRUGS (4)
  1. SOLU-CORTEF [Suspect]
     Indication: ANAPHYLACTIC SHOCK
     Dosage: INTRAVENOUS
     Route: 042
     Dates: start: 20050519, end: 20050501
  2. KN SOL 3B (GLUCOSE, POTASSIUM CHLORIDE SODIUM CHLORIDE, SODIUM LACTATE [Suspect]
     Indication: ILL-DEFINED DISORDER
     Dosage: INTRAVENOUS
     Route: 042
  3. AMINOPHYLLIN [Concomitant]
     Indication: ILL-DEFINED DISORDER
     Dosage: INTRAVENOUS
     Route: 042
  4. GLYPHAGEN C (AMINOACETIC ACID, CYSTEINE, GLYCYRRHIZIC ACID) [Suspect]
     Indication: ILL-DEFINED DISORDER
     Dosage: INTRAVENOUS
     Route: 042

REACTIONS (2)
  - ANAPHYLACTIC SHOCK [None]
  - URTICARIA [None]
